FAERS Safety Report 17885317 (Version 1)
Quarter: 2020Q2

REPORT INFORMATION
  Report Type: Spontaneous
  Country: US (occurrence: US)
  Receive Date: 20200611
  Receipt Date: 20200611
  Transmission Date: 20200714
  Serious: Yes (Other)
  Sender: FDA-Public Use
  Company Number: US-PFIZER INC-2020219997

PATIENT

DRUGS (3)
  1. MITOMYCIN. [Suspect]
     Active Substance: MITOMYCIN
     Indication: HEPATIC CANCER
     Dosage: UNK, ACCUMULATED DOSE (33 MG) TRANSTEMORAL HEPATIC ARTERIAL INFUSION
     Dates: start: 19810128, end: 19810226
  2. FLUOROURACIL. [Suspect]
     Active Substance: FLUOROURACIL
     Indication: HEPATIC CANCER
     Dosage: UNK ACCUMULATED DOSE (15,500 MG) TRANSTEMORAL HEPATIC ARTERIAL INFUSION
     Dates: start: 19810128, end: 19820303
  3. DOXORUBICIN HCL [Suspect]
     Active Substance: DOXORUBICIN HYDROCHLORIDE
     Indication: HEPATIC CANCER
     Dosage: UNK ACCUMULATED DOSE (155MG) TRANSTEMORAL HEPATIC ARTERIAL INFUSION
     Dates: start: 19810128, end: 19810226

REACTIONS (1)
  - Peptic ulcer [Unknown]
